FAERS Safety Report 13192804 (Version 5)
Quarter: 2017Q2

REPORT INFORMATION
  Report Type: Report from Study
  Country: CN (occurrence: CN)
  Receive Date: 20170207
  Receipt Date: 20170615
  Transmission Date: 20170830
  Serious: Yes (Death, Other)
  Sender: FDA-Public Use
  Company Number: CN-ASTRAZENECA-2017SE02608

PATIENT
  Age: 23466 Day
  Sex: Male
  Weight: 62 kg

DRUGS (8)
  1. CHINESE TRADITIONAL MEDICINE NOS [Concomitant]
     Active Substance: UNSPECIFIED INGREDIENT
     Route: 042
     Dates: start: 20161224, end: 20161228
  2. ADEMETIONINE [Concomitant]
     Active Substance: ADEMETIONINE
     Route: 042
     Dates: start: 20161220, end: 20161221
  3. FAT EMULSION NOS [Concomitant]
     Active Substance: EGG PHOSPHOLIPIDS\SAFFLOWER OIL\SOYBEAN OIL
     Dosage: 250 ML,ONCE
     Route: 042
     Dates: start: 20161223, end: 20161223
  4. PHOSPHATIDYL CHOLINE [Concomitant]
     Active Substance: LECITHIN
     Route: 042
     Dates: start: 20161222, end: 20161228
  5. POTASSIUM CITRATE. [Concomitant]
     Active Substance: POTASSIUM CITRATE
     Route: 042
     Dates: start: 20161220, end: 20161228
  6. HUMAN SERUM ALBUMIN [Concomitant]
     Active Substance: ALBUMIN HUMAN
     Dosage: 10 MG,ONCE
     Route: 042
     Dates: start: 20161220, end: 20161221
  7. TAGRISSO [Suspect]
     Active Substance: OSIMERTINIB
     Indication: NON-SMALL CELL LUNG CANCER METASTATIC
     Route: 048
     Dates: start: 20160511, end: 20161208
  8. GLYCYRRHIZIC ACID, AMMONIUM SALT [Concomitant]
     Route: 042
     Dates: start: 20161222, end: 20161228

REACTIONS (3)
  - Alanine aminotransferase increased [Not Recovered/Not Resolved]
  - Blood bilirubin increased [Not Recovered/Not Resolved]
  - Aspartate aminotransferase increased [Not Recovered/Not Resolved]

NARRATIVE: CASE EVENT DATE: 20161207
